FAERS Safety Report 14029397 (Version 2)
Quarter: 2017Q4

REPORT INFORMATION
  Report Type: Report from Study
  Country: ES (occurrence: ES)
  Receive Date: 20171002
  Receipt Date: 20171003
  Transmission Date: 20180321
  Serious: No
  Sender: FDA-Public Use
  Company Number: ES-JAZZ-2017-ES-011147

PATIENT
  Age: 35 Year
  Sex: Male

DRUGS (7)
  1. XYREM [Suspect]
     Active Substance: SODIUM OXYBATE
     Indication: POST-ANOXIC MYOCLONUS
     Dosage: UNK
     Route: 048
  2. PIRACETAM [Suspect]
     Active Substance: PIRACETAM
     Indication: PRODUCT USED FOR UNKNOWN INDICATION
  3. THIOPENTAL [Concomitant]
     Active Substance: THIOPENTAL
  4. SODIUM VALPROATE [Concomitant]
     Active Substance: VALPROATE SODIUM
  5. ZONISAMIDE. [Concomitant]
     Active Substance: ZONISAMIDE
  6. PROPOFOL. [Concomitant]
     Active Substance: PROPOFOL
  7. CLONIDINE. [Concomitant]
     Active Substance: CLONIDINE

REACTIONS (1)
  - Off label use [Unknown]
